FAERS Safety Report 14311926 (Version 1)
Quarter: 2017Q4

REPORT INFORMATION
  Report Type: Spontaneous
  Country: US (occurrence: US)
  Receive Date: 20171221
  Receipt Date: 20171221
  Transmission Date: 20180321
  Serious: Yes (Hospitalization)
  Sender: FDA-Public Use
  Company Number: US-SUN PHARMACEUTICAL INDUSTRIES LTD-2017US-147039

PATIENT
  Age: 51 Year
  Sex: Male

DRUGS (2)
  1. MYCOPHENOLATE MOFETIL. [Suspect]
     Active Substance: MYCOPHENOLATE MOFETIL
     Indication: PACHYMENINGITIS
     Dosage: 1 G, BID
     Route: 065
  2. PREDNISONE. [Suspect]
     Active Substance: PREDNISONE
     Indication: PACHYMENINGITIS
     Dosage: 40 MG, DAILY
     Route: 065

REACTIONS (5)
  - Disease progression [Recovered/Resolved]
  - Depression [Recovered/Resolved]
  - Folliculitis [Recovered/Resolved]
  - Weight increased [Recovered/Resolved]
  - Dyschromatopsia [Recovered/Resolved]
